FAERS Safety Report 13164127 (Version 3)
Quarter: 2017Q1

REPORT INFORMATION
  Report Type: Spontaneous
  Country: NL (occurrence: NL)
  Receive Date: 20170130
  Receipt Date: 20170314
  Transmission Date: 20170428
  Serious: Yes (Hospitalization, Other)
  Sender: FDA-Public Use
  Company Number: NL-TEVA-727938ISR

PATIENT
  Age: 52 Year
  Sex: Female
  Weight: 83 kg

DRUGS (2)
  1. PACLITAXEL AUROBINDO 6 MG/ML CONCENTRATE FOR SOLUTION FOR INFUSION [Suspect]
     Active Substance: PACLITAXEL
     Dosage: 100 MILLIGRAM DAILY;
     Route: 065
     Dates: start: 20161222
  2. PACLITAXEL AUROBINDO 6 MG/ML CONCENTRATE FOR SOLUTION FOR INFUSION [Suspect]
     Active Substance: PACLITAXEL
     Indication: BREAST CANCER
     Dosage: 160 MILLIGRAM DAILY;
     Route: 042
     Dates: start: 20161215, end: 20161222

REACTIONS (8)
  - Hypersensitivity [Unknown]
  - Hyperhidrosis [Unknown]
  - Erythema [Unknown]
  - Bradycardia [Recovered/Resolved]
  - Rash [Recovered/Resolved]
  - Chest discomfort [Recovered/Resolved]
  - Malaise [Unknown]
  - Loss of consciousness [Recovered/Resolved]

NARRATIVE: CASE EVENT DATE: 20161222
